FAERS Safety Report 9835008 (Version 1)
Quarter: 2014Q1

REPORT INFORMATION
  Report Type: Spontaneous
  Country: GB (occurrence: GB)
  Receive Date: 20140122
  Receipt Date: 20140122
  Transmission Date: 20141002
  Serious: Yes (Other)
  Sender: FDA-Public Use
  Company Number: GB-ACTAVIS-2014-00233

PATIENT
  Age: 39 Year
  Sex: Female

DRUGS (8)
  1. TRIAMCINOLONE ACETONIDE (AMALLC) [Suspect]
     Indication: BACK PAIN
     Dosage: 40 MG, 2 INJECTIONS, 1 EVERY 10 DAYS
     Route: 008
  2. TRIAMCINOLONE ACETONIDE (AMALLC) [Interacting]
     Indication: PAIN IN EXTREMITY
  3. RITONAVIR [Interacting]
     Indication: HIV INFECTION
     Dosage: UNK
     Route: 065
  4. TENOFOVIR [Concomitant]
     Indication: HIV INFECTION
     Dosage: UNK
     Route: 065
  5. EMTRICITABINE [Concomitant]
     Indication: HIV INFECTION
     Dosage: UNK
     Route: 065
  6. DARUNAVIR [Concomitant]
     Indication: HIV INFECTION
     Dosage: UNK
     Route: 065
  7. BUPIVACAINE [Concomitant]
     Indication: BACK PAIN
     Dosage: 0.5 %, 2 INJECTIONS, 1 EVERY 10 DAYS
     Route: 008
  8. BUPIVACAINE [Concomitant]
     Indication: PAIN IN EXTREMITY

REACTIONS (2)
  - Cushing^s syndrome [Recovering/Resolving]
  - Drug interaction [Recovering/Resolving]
